FAERS Safety Report 5032815-3 (Version None)
Quarter: 2006Q2

REPORT INFORMATION
  Report Type: 
  Country: None (occurrence: None)
  Receive Date: 20060515
  Receipt Date: 20060307
  Transmission Date: 20061013
  Serious: No
  Sender: FDA-Public Use
  Company Number: S06-USA-00763-01

PATIENT
  Age: 74 Year
  Sex: Female

DRUGS (7)
  1. NAMENDA [Suspect]
     Indication: CONFUSIONAL STATE
     Dosage: 2.5 MG QD PO
     Route: 048
     Dates: start: 20060301, end: 20060302
  2. COUMADIN [Concomitant]
  3. LASIX [Concomitant]
  4. THYROID (NOS) [Concomitant]
  5. PREMARIN [Concomitant]
  6. LIBRIUM [Concomitant]
  7. VITAMINS NOS [Concomitant]

REACTIONS (1)
  - VISION BLURRED [None]
